FAERS Safety Report 6616159-1 (Version None)
Quarter: 2010Q1

REPORT INFORMATION
  Report Type: 
  Country: None (occurrence: None)
  Receive Date: 20100305
  Receipt Date: 20100222
  Transmission Date: 20100710
  Serious: Yes (Hospitalization, Other)
  Sender: FDA-Public Use
  Company Number: JP-PFIZER INC-2010012576

PATIENT
  Age: 70 Year
  Sex: Male
  Weight: 47.5 kg

DRUGS (1)
  1. ZYVOX [Suspect]
     Indication: STAPHYLOCOCCAL INFECTION
     Dosage: 600 MG, 2X/DAY
     Route: 042
     Dates: start: 20100112, end: 20100125

REACTIONS (4)
  - DYSPHAGIA [None]
  - HYPONATRAEMIA [None]
  - MUSCULAR WEAKNESS [None]
  - PANCYTOPENIA [None]
